FAERS Safety Report 9144558 (Version 2)
Quarter: 2013Q1

REPORT INFORMATION
  Report Type: Spontaneous
  Country: US (occurrence: US)
  Receive Date: 20130306
  Receipt Date: 20130315
  Transmission Date: 20140127
  Serious: Yes (Other)
  Sender: FDA-Public Use
  Company Number: US-ROCHE-1198865

PATIENT
  Sex: 0

DRUGS (9)
  1. XOLAIR [Suspect]
     Indication: CHRONIC SPONTANEOUS URTICARIA
     Route: 065
     Dates: start: 20110909, end: 201202
  2. SYMBICORT [Concomitant]
     Dosage: 200/G MCG/INHALATION
     Route: 065
  3. LORATADINE [Concomitant]
     Route: 065
  4. SIMVASTATIN [Concomitant]
     Route: 065
  5. BUTACORT [Concomitant]
     Route: 065
  6. BRICANYL INHALER [Concomitant]
     Route: 065
  7. CETIRIZINE [Concomitant]
     Route: 065
  8. RANITIDINE [Concomitant]
     Route: 065
  9. PREDNISONE [Concomitant]

REACTIONS (12)
  - Asthma [Recovering/Resolving]
  - Hypercholesterolaemia [Unknown]
  - Eosinophilia [Unknown]
  - Drug hypersensitivity [Recovered/Resolved]
  - Tendonitis [Recovered/Resolved]
  - Viral infection [Unknown]
  - Hypersensitivity [Not Recovered/Not Resolved]
  - Adverse drug reaction [Not Recovered/Not Resolved]
  - Poor quality sleep [Recovered/Resolved]
  - Snoring [Recovered/Resolved]
  - Gingival infection [Recovered/Resolved]
  - Tooth extraction [Recovered/Resolved]
